FAERS Safety Report 20870155 (Version 3)
Quarter: 2022Q4

REPORT INFORMATION
  Report Type: Report from Study
  Country: US (occurrence: US)
  Receive Date: 20220525
  Receipt Date: 20221101
  Transmission Date: 20230112
  Serious: Yes (Other)
  Sender: FDA-Public Use
  Company Number: US-ABBVIE-22K-163-4402162-00

PATIENT
  Age: 69 Year
  Sex: Male

DRUGS (6)
  1. HUMIRA [Suspect]
     Active Substance: ADALIMUMAB
     Indication: Product used for unknown indication
     Dosage: CITRATE FREE
     Route: 058
     Dates: start: 2016
  2. HUMIRA [Suspect]
     Active Substance: ADALIMUMAB
     Indication: Psoriasis
  3. HUMIRA [Suspect]
     Active Substance: ADALIMUMAB
     Indication: Psoriatic arthropathy
  4. PFIZER-BIONTECH COVID-19 VACCINE [Concomitant]
     Active Substance: TOZINAMERAN
     Indication: COVID-19 immunisation
     Dosage: ONCE FIRST DOSE
     Route: 030
     Dates: start: 20210201, end: 20210201
  5. PFIZER-BIONTECH COVID-19 VACCINE [Concomitant]
     Active Substance: TOZINAMERAN
     Indication: COVID-19 immunisation
     Dosage: ONCE SECOND DOSE
     Route: 030
     Dates: start: 20210228, end: 20210228
  6. PFIZER-BIONTECH COVID-19 VACCINE [Concomitant]
     Active Substance: TOZINAMERAN
     Indication: COVID-19 immunisation
     Dosage: ONCE THIRD DOSE
     Route: 030
     Dates: start: 20220401, end: 20220401

REACTIONS (11)
  - Basosquamous carcinoma of skin [Recovered/Resolved]
  - Illness [Unknown]
  - Skin cancer [Not Recovered/Not Resolved]
  - Memory impairment [Not Recovered/Not Resolved]
  - Blister [Unknown]
  - Therapeutic product effect incomplete [Not Recovered/Not Resolved]
  - Injection site pain [Unknown]
  - Psoriasis [Not Recovered/Not Resolved]
  - Therapeutic product effect decreased [Not Recovered/Not Resolved]
  - Drug ineffective [Not Recovered/Not Resolved]
  - Malaise [Unknown]

NARRATIVE: CASE EVENT DATE: 20210701
